FAERS Safety Report 6595306-4 (Version None)
Quarter: 2010Q1

REPORT INFORMATION
  Report Type: 
  Country: None (occurrence: None)
  Receive Date: 20100219
  Receipt Date: 20100219
  Transmission Date: 20100710
  Serious: Yes (Other)
  Sender: FDA-Public Use
  Company Number: None

PATIENT
  Sex: Female
  Weight: 71.6683 kg

DRUGS (5)
  1. SINGULAIR [Suspect]
     Indication: HYPERSENSITIVITY
     Dosage: 10 MG ONCE A DAY PO
     Route: 048
     Dates: start: 20060301, end: 20091031
  2. ADVAIR DISKUS 100/50 [Concomitant]
  3. PROVENTIL [Concomitant]
  4. XOPENEX [Concomitant]
  5. ALLEGRA [Concomitant]

REACTIONS (18)
  - ABDOMINAL PAIN [None]
  - ALOPECIA [None]
  - APATHY [None]
  - ASTHMA [None]
  - BACK PAIN [None]
  - DECREASED INTEREST [None]
  - FATIGUE [None]
  - GAIT DISTURBANCE [None]
  - HEADACHE [None]
  - MANIA [None]
  - MOTOR DYSFUNCTION [None]
  - MUCOUS MEMBRANE DISORDER [None]
  - MYALGIA [None]
  - PAIN [None]
  - PAIN IN EXTREMITY [None]
  - PHOTOSENSITIVITY REACTION [None]
  - SKIN CHAPPED [None]
  - SKIN DISCOLOURATION [None]
